FAERS Safety Report 22399157 (Version 3)
Quarter: 2023Q4

REPORT INFORMATION
  Report Type: Spontaneous
  Country: US (occurrence: US)
  Receive Date: 20230602
  Receipt Date: 20231114
  Transmission Date: 20240110
  Serious: No
  Sender: FDA-Public Use
  Company Number: US-BRISTOL-MYERS SQUIBB COMPANY-2023-077891

PATIENT
  Age: 63 Year
  Sex: Male
  Weight: 107.5 kg

DRUGS (1)
  1. REVLIMID [Suspect]
     Active Substance: LENALIDOMIDE
     Indication: Plasma cell myeloma
     Dosage: FREQUENCY: 21DAYS DAILY
     Route: 048
     Dates: start: 20221001

REACTIONS (5)
  - Oral candidiasis [Unknown]
  - Fatigue [Unknown]
  - Sinusitis [Unknown]
  - Ear infection [Unknown]
  - Rash [Recovering/Resolving]
